FAERS Safety Report 5003427-2 (Version None)
Quarter: 2006Q2

REPORT INFORMATION
  Report Type: 
  Country: None (occurrence: None)
  Receive Date: 20060511
  Receipt Date: 20060427
  Transmission Date: 20061013
  Serious: Yes (Life-Threatening, Hospitalization)
  Sender: FDA-Public Use
  Company Number: DEU-2006-0002166

PATIENT
  Age: 18 Year
  Sex: Female

DRUGS (5)
  1. MORPHINE SULFATE [Suspect]
     Indication: DRUG WITHDRAWAL MAINTENANCE THERAPY
  2. AMITRIPTYLINE HYDROCHLORIDE [Concomitant]
  3. TRILEPTAL [Concomitant]
  4. GEWACALM (DIAZEPAM) [Concomitant]
  5. DIHYDROCODEINE BITARTATE (DIHYDROCODEINE BITARTRATE, DIHYDROCODEINE BI [Concomitant]

REACTIONS (4)
  - BRAIN OEDEMA [None]
  - COMA [None]
  - DRUG SCREEN POSITIVE [None]
  - OVERDOSE [None]
